FAERS Safety Report 4423409-9 (Version None)
Quarter: 2004Q3

REPORT INFORMATION
  Report Type: 
  Country: None (occurrence: None)
  Receive Date: 20040806
  Receipt Date: 20040802
  Transmission Date: 20050211
  Serious: Yes (Death)
  Sender: FDA-Public Use
  Company Number: 2004UW16444

PATIENT
  Sex: Female

DRUGS (3)
  1. FASLODEX [Suspect]
  2. ERCEPTIN [Concomitant]
  3. ZOMETA [Concomitant]

REACTIONS (1)
  - DEATH [None]
